FAERS Safety Report 6686448-3 (Version None)
Quarter: 2010Q2

REPORT INFORMATION
  Report Type: 
  Country: None (occurrence: None)
  Receive Date: 20100419
  Receipt Date: 20100412
  Transmission Date: 20101027
  Serious: Yes (Other)
  Sender: FDA-Public Use
  Company Number: B0648018A

PATIENT
  Age: 35 Year
  Sex: Female

DRUGS (1)
  1. ACYCLOVIR [Suspect]
     Route: 065

REACTIONS (5)
  - CEREBRAL HAEMORRHAGE [None]
  - HYPERTENSION [None]
  - INTRACRANIAL PRESSURE INCREASED [None]
  - VASCULAR INJURY [None]
  - VASCULITIS [None]
